FAERS Safety Report 7249860-X (Version None)
Quarter: 2011Q1

REPORT INFORMATION
  Report Type: 
  Country: None (occurrence: None)
  Receive Date: 20110128
  Receipt Date: 20100617
  Transmission Date: 20110831
  Serious: No
  Sender: FDA-Public Use
  Company Number: A0866839A

PATIENT
  Age: 64 Year
  Sex: Male
  Weight: 54.5 kg

DRUGS (4)
  1. CHANTIX [Suspect]
     Dosage: .5MG PER DAY
     Route: 048
  2. BUSPAR [Suspect]
     Indication: MENTAL DISORDER
  3. WELLBUTRIN [Suspect]
     Indication: MENTAL DISORDER
  4. NAVANE [Suspect]
     Indication: MENTAL DISORDER

REACTIONS (9)
  - NAUSEA [None]
  - CHRONIC OBSTRUCTIVE PULMONARY DISEASE [None]
  - DELUSION [None]
  - ABNORMAL DREAMS [None]
  - GASTROOESOPHAGEAL REFLUX DISEASE [None]
  - DRUG INTERACTION [None]
  - BRONCHITIS [None]
  - STRESS [None]
  - WEIGHT DECREASED [None]
